FAERS Safety Report 14761758 (Version 1)
Quarter: 2018Q2

REPORT INFORMATION
  Report Type: Spontaneous
  Country: PT (occurrence: PT)
  Receive Date: 20180416
  Receipt Date: 20180416
  Transmission Date: 20180711
  Serious: Yes (Death, Hospitalization, Other)
  Sender: FDA-Public Use
  Company Number: PT-B.I. PHARMACEUTICALS,INC./RIDGEFIELD-2018-BI-020470

PATIENT
  Age: 75 Year
  Sex: Female

DRUGS (1)
  1. SPIOLTO RESPIMAT [Suspect]
     Active Substance: OLODATEROL HYDROCHLORIDE\TIOTROPIUM BROMIDE MONOHYDRATE
     Indication: PRODUCT USED FOR UNKNOWN INDICATION
     Route: 055

REACTIONS (18)
  - Viral infection [Unknown]
  - Tachypnoea [Unknown]
  - Cough [Unknown]
  - Monocytosis [Unknown]
  - Crepitations [Unknown]
  - Neutrophilia [Unknown]
  - Pneumothorax [Unknown]
  - Pyrexia [Unknown]
  - Idiopathic pulmonary fibrosis [Unknown]
  - Aortic arteriosclerosis [Unknown]
  - Dyspnoea [Unknown]
  - Dyspnoea exertional [Unknown]
  - Interstitial lung disease [Unknown]
  - Clubbing [Unknown]
  - Death [Fatal]
  - Combined pulmonary fibrosis and emphysema [Unknown]
  - Pulmonary hypertension [Unknown]
  - Tricuspid valve incompetence [Unknown]
